FAERS Safety Report 16934781 (Version 5)
Quarter: 2019Q4

REPORT INFORMATION
  Report Type: Other
  Country: NL (occurrence: NL)
  Receive Date: 20191018
  Receipt Date: 20191219
  Transmission Date: 20200122
  Serious: Yes (Death, Hospitalization, Other)
  Sender: FDA-Public Use
  Company Number: NL-ASPEN-GLO2019NL010673

PATIENT
  Age: 62 Year
  Sex: Female
  Weight: 49.6 kg

DRUGS (6)
  1. VELCADE [Suspect]
     Active Substance: BORTEZOMIB
     Indication: PLASMA CELL MYELOMA
     Dosage: 2 MG
     Route: 058
     Dates: start: 20190902, end: 20190909
  2. CEFUROXIME. [Concomitant]
     Active Substance: CEFUROXIME
     Indication: SEPSIS
     Route: 065
  3. VELCADE [Suspect]
     Active Substance: BORTEZOMIB
     Dosage: 1 MG
     Route: 058
     Dates: start: 20190912, end: 20190912
  4. SODIUM BICARBONATE. [Concomitant]
     Active Substance: SODIUM BICARBONATE
     Indication: BLOOD POTASSIUM INCREASED
     Route: 042
  5. DEXAMETHASONE. [Suspect]
     Active Substance: DEXAMETHASONE
     Indication: PLASMA CELL MYELOMA
     Dosage: 40 MG
     Route: 048
     Dates: start: 20190902, end: 20190913
  6. LENALIDOMIDE [Suspect]
     Active Substance: LENALIDOMIDE
     Indication: PLASMA CELL MYELOMA
     Dosage: 25 MG
     Route: 048
     Dates: start: 20190902, end: 20190915

REACTIONS (7)
  - Renal impairment [Fatal]
  - Hypotension [Unknown]
  - Atrial fibrillation [Fatal]
  - Diarrhoea [Fatal]
  - Vomiting [Unknown]
  - Septic shock [Fatal]
  - Dyspnoea [Unknown]

NARRATIVE: CASE EVENT DATE: 20190913
